FAERS Safety Report 9308286 (Version 1)
Quarter: 2013Q2

REPORT INFORMATION
  Report Type: Spontaneous
  Country: US (occurrence: US)
  Receive Date: 20130524
  Receipt Date: 20130524
  Transmission Date: 20140414
  Serious: Yes (Other)
  Sender: FDA-Public Use
  Company Number: US-ELI_LILLY_AND_COMPANY-US201305005960

PATIENT
  Sex: 0

DRUGS (1)
  1. HUMATROPE [Suspect]

REACTIONS (1)
  - Neoplasm [Unknown]
